FAERS Safety Report 9695738 (Version 2)
Quarter: 2014Q1

REPORT INFORMATION
  Report Type: Spontaneous
  Country: JP (occurrence: JP)
  Receive Date: 20131119
  Receipt Date: 20140115
  Transmission Date: 20141002
  Serious: Yes (Death)
  Sender: FDA-Public Use
  Company Number: JP-OTSUKA-JP-2013-15236

PATIENT
  Age: 80 Year
  Sex: Female

DRUGS (2)
  1. SAMSCA [Suspect]
     Indication: OEDEMA DUE TO HEPATIC DISEASE
     Dosage: 3.25 MG MILLIGRAM(S), DAILY DOSE
     Route: 048
     Dates: start: 20131030, end: 20131105
  2. LASIX [Concomitant]
     Dosage: 40 MG MILLIGRAM(S), DAILY DOSE
     Route: 048

REACTIONS (2)
  - Hepatic cirrhosis [Fatal]
  - Hepatorenal syndrome [Fatal]
